FAERS Safety Report 14199513 (Version 1)
Quarter: 2017Q4

REPORT INFORMATION
  Report Type: Spontaneous
  Country: US (occurrence: None)
  Receive Date: 20171116
  Receipt Date: 20171116
  Transmission Date: 20180321
  Serious: No
  Sender: FDA-Public Use
  Company Number: None

PATIENT
  Age: 46 Year
  Sex: Female

DRUGS (1)
  1. STELARA [Suspect]
     Active Substance: USTEKINUMAB

REACTIONS (4)
  - Pain in extremity [None]
  - Arthralgia [None]
  - Peripheral swelling [None]
  - Impaired work ability [None]

NARRATIVE: CASE EVENT DATE: 20171116
